FAERS Safety Report 7951215-7 (Version None)
Quarter: 2011Q4

REPORT INFORMATION
  Report Type: 
  Country: None (occurrence: None)
  Receive Date: 20111201
  Receipt Date: 20111129
  Transmission Date: 20120403
  Serious: Yes (Death, Hospitalization, Disabling, Other)
  Sender: FDA-Public Use
  Company Number: PHFR2011GB05004

PATIENT
  Sex: Male

DRUGS (4)
  1. CLARITHROMYCIN [Concomitant]
     Dosage: 500 MG, BID
     Route: 065
  2. CLOZARIL [Suspect]
     Indication: SCHIZOPHRENIA
     Route: 048
     Dates: start: 20110811
  3. ARIPIPRAZOLE [Concomitant]
  4. ATROPINE [Concomitant]

REACTIONS (13)
  - MENTAL IMPAIRMENT [None]
  - SOMNOLENCE [None]
  - DRUG DEPENDENCE [None]
  - GENERAL PHYSICAL HEALTH DETERIORATION [None]
  - LOWER RESPIRATORY TRACT INFECTION [None]
  - CHOKING SENSATION [None]
  - MOBILITY DECREASED [None]
  - AGITATION [None]
  - SEDATION [None]
  - LOWER LIMB FRACTURE [None]
  - DYSPNOEA [None]
  - SALIVARY HYPERSECRETION [None]
  - WEIGHT INCREASED [None]
